FAERS Safety Report 15101244 (Version 7)
Quarter: 2018Q3

REPORT INFORMATION
  Report Type: Spontaneous
  Country: ES (occurrence: ES)
  Receive Date: 20180703
  Receipt Date: 20180906
  Transmission Date: 20181010
  Serious: Yes (Hospitalization, Other)
  Sender: FDA-Public Use
  Company Number: ES-ABBVIE-18K-144-2407504-00

PATIENT
  Age: 45 Year
  Sex: Female

DRUGS (11)
  1. VENCLYXTO [Suspect]
     Active Substance: VENETOCLAX
     Route: 048
     Dates: start: 20180726, end: 20180727
  2. VENCLYXTO [Suspect]
     Active Substance: VENETOCLAX
     Route: 048
     Dates: start: 20180810, end: 201808
  3. VENCLYXTO [Suspect]
     Active Substance: VENETOCLAX
     Route: 048
     Dates: start: 20180712, end: 20180719
  4. PREDNISONA [Concomitant]
     Active Substance: PREDNISONE
     Indication: PANCYTOPENIA
     Route: 048
  5. VENCLYXTO [Suspect]
     Active Substance: VENETOCLAX
     Indication: CHRONIC LYMPHOCYTIC LEUKAEMIA
     Route: 048
     Dates: start: 20180627, end: 20180702
  6. VENCLYXTO [Suspect]
     Active Substance: VENETOCLAX
     Route: 048
     Dates: start: 20180719, end: 201807
  7. LEVOFLOXACIN. [Concomitant]
     Active Substance: LEVOFLOXACIN
     Indication: PNEUMONIA
     Dates: start: 20180618
  8. RASBURICASA [Concomitant]
     Indication: PRODUCT USED FOR UNKNOWN INDICATION
  9. VENCLYXTO [Suspect]
     Active Substance: VENETOCLAX
     Route: 048
     Dates: start: 20180817, end: 20180822
  10. MEROPENEM. [Concomitant]
     Active Substance: MEROPENEM
     Indication: PNEUMONIA
     Dates: start: 20180618
  11. FLUCONAZOLE. [Concomitant]
     Active Substance: FLUCONAZOLE
     Indication: PYREXIA
     Dates: start: 20180621, end: 20180629

REACTIONS (13)
  - Sinusitis aspergillus [Recovering/Resolving]
  - Richter^s syndrome [Unknown]
  - Nervous system disorder [Unknown]
  - C-reactive protein increased [Unknown]
  - Diarrhoea [Not Recovered/Not Resolved]
  - Transaminases increased [Recovered/Resolved]
  - Pneumonia [Recovering/Resolving]
  - Lymphadenopathy [Recovering/Resolving]
  - Febrile neutropenia [Not Recovered/Not Resolved]
  - Chronic lymphocytic leukaemia [Unknown]
  - Fungal infection [Unknown]
  - Blood lactate dehydrogenase increased [Recovered/Resolved with Sequelae]
  - Blood alkaline phosphatase increased [Unknown]

NARRATIVE: CASE EVENT DATE: 2018
